FAERS Safety Report 16445831 (Version 1)
Quarter: 2019Q2

REPORT INFORMATION
  Report Type: Other
  Country: IT (occurrence: IT)
  Receive Date: 20190618
  Receipt Date: 20190618
  Transmission Date: 20190711
  Serious: Yes (Hospitalization)
  Sender: FDA-Public Use
  Company Number: IT-SERVIER-S19006080

PATIENT

DRUGS (18)
  1. URBASON [Concomitant]
     Active Substance: METHYLPREDNISOLONE
     Indication: PRODUCT USED FOR UNKNOWN INDICATION
     Dosage: 10 MG, UNK
     Route: 037
     Dates: start: 20181115, end: 20181129
  2. ANTRA [Concomitant]
     Active Substance: OMEPRAZOLE
     Indication: PRODUCT USED FOR UNKNOWN INDICATION
     Dosage: 40 MG, UNK
     Route: 042
  3. TN UNSPECIFIED [CYCLOPHOSPHAMIDE] [Suspect]
     Active Substance: CYCLOPHOSPHAMIDE
     Indication: ACUTE LYMPHOCYTIC LEUKAEMIA
     Dosage: 234 MG, UNK, CYCLICALLY
     Route: 042
     Dates: start: 20181130, end: 20181130
  4. TN UNSPECIFIED [CYCLOPHOSPHAMIDE] [Suspect]
     Active Substance: CYCLOPHOSPHAMIDE
     Dosage: 468 MG, UNK, CYCLICALLY
     Route: 042
     Dates: start: 20181201, end: 20181202
  5. ONCASPAR [Suspect]
     Active Substance: PEGASPARGASE
     Indication: ACUTE LYMPHOCYTIC LEUKAEMIA
     Dosage: 2925 KIU, UNK, CYCLICALLY
     Route: 042
     Dates: start: 20181204, end: 20181226
  6. UROMITEXAN [Suspect]
     Active Substance: MESNA
     Dosage: 164 MG, CYCLICALLY
     Route: 042
     Dates: start: 20181203, end: 20181203
  7. DEBRIDAT [Concomitant]
     Active Substance: TRIMEBUTINE MALEATE
     Indication: PRODUCT USED FOR UNKNOWN INDICATION
     Dosage: 0.5 DF, UNK
     Route: 042
     Dates: start: 20181207
  8. ENTEROGERMINA [Concomitant]
     Active Substance: BACILLUS SUBTILIS
     Indication: PRODUCT USED FOR UNKNOWN INDICATION
     Dosage: 1 DF, UNK
     Route: 048
     Dates: start: 20181207
  9. IG VENA [Concomitant]
     Active Substance: HUMAN IMMUNOGLOBULIN G
     Indication: BLOOD IMMUNOGLOBULIN G DECREASED
     Dosage: 15 G, UNK
     Route: 042
     Dates: start: 20181207, end: 20181207
  10. MYCOSTATIN [Concomitant]
     Active Substance: NYSTATIN
     Indication: PRODUCT USED FOR UNKNOWN INDICATION
     Dosage: 15 ML, UNK
     Route: 048
  11. UROMITEXAN [Suspect]
     Active Substance: MESNA
     Dosage: 492 MG, CYCLICALLY
     Route: 042
     Dates: start: 20181201, end: 20181202
  12. METHOTREXATE. [Suspect]
     Active Substance: METHOTREXATE
     Indication: ACUTE LYMPHOCYTIC LEUKAEMIA
     Dosage: 12 MG, CYCLICALLY
     Route: 037
     Dates: start: 20181115, end: 20181129
  13. METHOTREXATE. [Suspect]
     Active Substance: METHOTREXATE
     Dosage: 5850 MG, CYCLICALLY
     Route: 037
     Dates: start: 20181115, end: 20181221
  14. VINCRISTINE [Suspect]
     Active Substance: VINCRISTINE
     Indication: ACUTE LYMPHOCYTIC LEUKAEMIA
     Dosage: 1.75 MG, CYCLICALLY
     Route: 042
     Dates: start: 20181129, end: 20181204
  15. BACTRIM [Concomitant]
     Active Substance: SULFAMETHOXAZOLE\TRIMETHOPRIM
     Indication: PRODUCT USED FOR UNKNOWN INDICATION
     Dosage: 2 DF, UNK
     Route: 048
  16. DILATREND [Concomitant]
     Active Substance: CARVEDILOL
     Indication: PRODUCT USED FOR UNKNOWN INDICATION
     Dosage: 3.12 MG, UNK
     Route: 048
  17. PERFALGAN [Concomitant]
     Active Substance: ACETAMINOPHEN
     Dosage: 560 MG
     Route: 042
     Dates: start: 20181207, end: 20181207
  18. UROMITEXAN [Suspect]
     Active Substance: MESNA
     Indication: ACUTE LYMPHOCYTIC LEUKAEMIA
     Dosage: 82 MG, CYCLICALLY
     Route: 042
     Dates: start: 20181130, end: 20181130

REACTIONS (1)
  - Aplasia [Unknown]

NARRATIVE: CASE EVENT DATE: 20181210
